FAERS Safety Report 4716271-8 (Version None)
Quarter: 2005Q2

REPORT INFORMATION
  Report Type: 
  Country: None (occurrence: None)
  Receive Date: 20050630
  Receipt Date: 20050228
  Transmission Date: 20051028
  Serious: Yes (Hospitalization, Other)
  Sender: FDA-Public Use
  Company Number: US_010157770

PATIENT
  Age: 51 Year
  Sex: Female
  Weight: 100 kg

DRUGS (8)
  1. HUMALOG MIX 75/25 [Suspect]
     Indication: DIABETES MELLITUS
     Dosage: 80 U DAY
     Dates: start: 20011001
  2. HUMULIN 70/30 [Suspect]
     Indication: DIABETES MELLITUS
     Dosage: 36 U/DAY
     Dates: start: 20000201
  3. ACTOS ^TAKEDA^(PIOGLITIAZONE) [Concomitant]
  4. DILANTIN [Concomitant]
  5. LOPID [Concomitant]
  6. REGLAN [Concomitant]
  7. LIPITOR [Concomitant]
  8. LANOXIN [Concomitant]

REACTIONS (16)
  - ASTHENIA [None]
  - BLOOD GLUCOSE FLUCTUATION [None]
  - BLOOD GLUCOSE INCREASED [None]
  - BLOOD TRIGLYCERIDES INCREASED [None]
  - BONE INFECTION [None]
  - COMA [None]
  - FAT TISSUE INCREASED [None]
  - INJECTION SITE HAEMORRHAGE [None]
  - INJECTION SITE IRRITATION [None]
  - INJECTION SITE NODULE [None]
  - INJECTION SITE PAIN [None]
  - MEMORY IMPAIRMENT [None]
  - PANCREATIC DISORDER [None]
  - PANCREATITIS [None]
  - PERIPHERAL NERVE OPERATION [None]
  - WEIGHT INCREASED [None]
